FAERS Safety Report 14024248 (Version 2)
Quarter: 2017Q4

REPORT INFORMATION
  Report Type: Spontaneous
  Country: JP (occurrence: JP)
  Receive Date: 20170929
  Receipt Date: 20171010
  Transmission Date: 20180321
  Serious: Yes (Other)
  Sender: FDA-Public Use
  Company Number: JP-JNJFOC-20170925778

PATIENT

DRUGS (1)
  1. TRAMCET [Suspect]
     Active Substance: ACETAMINOPHEN\TRAMADOL
     Indication: PAIN
     Route: 048

REACTIONS (8)
  - Vomiting [Unknown]
  - Somnolence [Unknown]
  - Altered state of consciousness [Unknown]
  - Nausea [Unknown]
  - Oedema [Unknown]
  - Abdominal discomfort [Unknown]
  - Constipation [Unknown]
  - Inadequate analgesia [Unknown]
